FAERS Safety Report 10681639 (Version 1)
Quarter: 2014Q4

REPORT INFORMATION
  Report Type: Spontaneous
  Country: IT (occurrence: IT)
  Receive Date: 20141230
  Receipt Date: 20141230
  Transmission Date: 20150529
  Serious: Yes (Other)
  Sender: FDA-Public Use
  Company Number: IT-TEVA-531344ISR

PATIENT

DRUGS (3)
  1. PREDNISONE. [Suspect]
     Active Substance: PREDNISONE
     Indication: BLAST CELL CRISIS
     Dosage: 50MG DAILY FOR 30 DAYS
     Route: 065
  2. VINCRISTINE [Suspect]
     Active Substance: VINCRISTINE
     Indication: BLAST CELL CRISIS
     Dosage: 1.4 MG/M2 GIVEN AS 4 WEEKLY DOSES
     Route: 042
  3. DASATINIB [Suspect]
     Active Substance: DASATINIB
     Indication: BLAST CELL CRISIS
     Dosage: 140 MG/DAY
     Route: 065

REACTIONS (5)
  - Anaemia [Unknown]
  - Thrombocytopenia [Unknown]
  - Neutropenia [Unknown]
  - Constipation [Unknown]
  - Neuropathy peripheral [Unknown]
